FAERS Safety Report 8850988 (Version 3)
Quarter: 2013Q3

REPORT INFORMATION
  Report Type: Spontaneous
  Country: FR (occurrence: FR)
  Receive Date: 20121019
  Receipt Date: 20130927
  Transmission Date: 20140515
  Serious: Yes (Hospitalization)
  Sender: FDA-Public Use
  Company Number: PHHY2012FR093159

PATIENT
  Age: 80 Year
  Sex: Female

DRUGS (7)
  1. ACLASTA [Suspect]
     Indication: OSTEOPOROSIS
     Dosage: 5 MG, YEARLY
     Route: 042
     Dates: start: 20120420
  2. MONO TILDIEM [Concomitant]
     Dosage: 300 MG, UNK
     Route: 048
  3. KARDEGIC [Concomitant]
     Dosage: 75 MG, UNK
     Route: 048
  4. KARDEGIC [Concomitant]
     Dosage: 160 MG, UNK
  5. EUPRESSYL [Concomitant]
     Dosage: 30 MG, TID
     Route: 048
  6. SIMVASTATINE [Concomitant]
     Dosage: 20 MG, UNK
     Route: 048
  7. OROCAL VITAMINE D3 [Concomitant]
     Dosage: 500 MG, BID
     Route: 048

REACTIONS (2)
  - Retinal artery occlusion [Recovered/Resolved with Sequelae]
  - Visual acuity reduced [Not Recovered/Not Resolved]
